FAERS Safety Report 20859242 (Version 1)
Quarter: 2022Q2

REPORT INFORMATION
  Report Type: Spontaneous
  Country: IT (occurrence: IT)
  Receive Date: 20220523
  Receipt Date: 20220523
  Transmission Date: 20220721
  Serious: Yes (Other)
  Sender: FDA-Public Use
  Company Number: IT-MINISAL02-867423

PATIENT
  Age: 39 Year
  Sex: Male

DRUGS (1)
  1. KETOROLAC [Suspect]
     Active Substance: KETOROLAC TROMETHAMINE
     Indication: Renal colic
     Dosage: UNK
     Route: 030
     Dates: start: 20211213

REACTIONS (2)
  - Erythema [Recovered/Resolved]
  - Eyelid oedema [Recovered/Resolved]

NARRATIVE: CASE EVENT DATE: 20211214
